FAERS Safety Report 6423706-1 (Version None)
Quarter: 2009Q4

REPORT INFORMATION
  Report Type: 
  Country: None (occurrence: None)
  Receive Date: 20091030
  Receipt Date: 20091030
  Transmission Date: 20100525
  Serious: Yes (Hospitalization)
  Sender: FDA-Public Use
  Company Number: None

PATIENT
  Sex: Female
  Weight: 74.8 kg

DRUGS (2)
  1. XELODA [Suspect]
     Dosage: 87000 MG
  2. ELOXATIN [Suspect]
     Dosage: 450 MG

REACTIONS (3)
  - DEEP VEIN THROMBOSIS [None]
  - PULMONARY EMBOLISM [None]
  - SYNOVIAL CYST [None]
